FAERS Safety Report 4616345-6 (Version None)
Quarter: 2005Q1

REPORT INFORMATION
  Report Type: 
  Country: None (occurrence: None)
  Receive Date: 20050321
  Receipt Date: 20020911
  Transmission Date: 20050727
  Serious: Yes (Other)
  Sender: FDA-Public Use
  Company Number: 4275

PATIENT
  Age: 54 Year
  Sex: 0

DRUGS (6)
  1. IDARUBICIN HCL [Suspect]
     Dosage: 18 MG/M2 DAILY
  2. CYTARABINE [Suspect]
     Dosage: 1.5 G/M2 DAILY IV
     Route: 042
  3. AMIFOSTINE [Suspect]
     Dosage: 910 MG/M2 DAILY IV
     Route: 042
  4. ONDANSETRON [Concomitant]
  5. DEXAMETHASONE [Concomitant]
  6. LORAZEPAM [Concomitant]

REACTIONS (4)
  - DIARRHOEA [None]
  - MUCOSAL INFLAMMATION [None]
  - NAUSEA [None]
  - VOMITING [None]
